FAERS Safety Report 4515009-7 (Version None)
Quarter: 2004Q4

REPORT INFORMATION
  Report Type: 
  Country: None (occurrence: None)
  Receive Date: 20041126
  Receipt Date: 20041117
  Transmission Date: 20050328
  Serious: Yes (Hospitalization)
  Sender: FDA-Public Use
  Company Number: 2004095005

PATIENT
  Age: 69 Year
  Sex: Female

DRUGS (1)
  1. LIPITOR [Suspect]
     Indication: CORONARY ARTERY DISEASE
     Dosage: 40 MG (40 MG, 1IN 1 D), ORAL
     Route: 048
     Dates: end: 20040928

REACTIONS (5)
  - ABDOMINAL PAIN [None]
  - C-REACTIVE PROTEIN INCREASED [None]
  - HEPATITIS TOXIC [None]
  - INTERNATIONAL NORMALISED RATIO DECREASED [None]
  - RED BLOOD CELL SEDIMENTATION RATE INCREASED [None]
